FAERS Safety Report 4512906-3 (Version None)
Quarter: 2004Q4

REPORT INFORMATION
  Report Type: 
  Country: None (occurrence: None)
  Receive Date: 20041123
  Receipt Date: 20041123
  Transmission Date: 20050328
  Serious: Yes (Hospitalization)
  Sender: FDA-Public Use
  Company Number: None

PATIENT
  Age: 53 Year
  Sex: Male
  Weight: 105.2345 kg

DRUGS (5)
  1. IRESSA [Suspect]
     Indication: RENAL CELL CARCINOMA STAGE UNSPECIFIED
     Dosage: 250 MG PO QD
     Route: 048
  2. PEGULATED INTERFERON [Suspect]
     Indication: RENAL CELL CARCINOMA STAGE UNSPECIFIED
     Dosage: 60 UG/KG/WK
  3. COUMADIN [Concomitant]
  4. PRILOSECK [Concomitant]
  5. LISINOPRIL [Concomitant]

REACTIONS (3)
  - NAUSEA [None]
  - PULMONARY EMBOLISM [None]
  - VOMITING [None]
